FAERS Safety Report 22613222 (Version 1)
Quarter: 2023Q2

REPORT INFORMATION
  Report Type: Spontaneous
  Country: GB (occurrence: GB)
  Receive Date: 20230618
  Receipt Date: 20230618
  Transmission Date: 20230721
  Serious: Yes (Other)
  Sender: FDA-Public Use
  Company Number: GB-SAP-2791

PATIENT

DRUGS (3)
  1. LANSOPRAZOLE [Suspect]
     Active Substance: LANSOPRAZOLE
     Indication: Constipation
     Dosage: 30 MILLIGRAM DAILY; UNIT DOSE: 30MG, FREQUENCY: ONCE DAILY, PREVIOUSLY 1 TABLET A DAY
     Route: 065
  2. LANSOPRAZOLE [Suspect]
     Active Substance: LANSOPRAZOLE
     Dosage: 60 MILLIGRAM DAILY; UNIT DOSE: 30MG, FREQUENCY: TWICE DAILY, 30MG 2 TABLETS A DAY
     Route: 065
  3. POLYETHYLENE GLYCOL 3350\POTASSIUM CHLORIDE\SODIUM BICARBONATE\SODIUM [Suspect]
     Active Substance: POLYETHYLENE GLYCOL 3350\POTASSIUM CHLORIDE\SODIUM BICARBONATE\SODIUM CHLORIDE
     Indication: Constipation
     Dosage: TAKE 2 SACHETS A DAY OF YOUR PRODUCT, UNIT DOSE: 1DF, FREQUENCY: EVERY OTHER DAY
     Route: 065

REACTIONS (3)
  - Haematochezia [Not Recovered/Not Resolved]
  - Off label use [Recovered/Resolved]
  - Product prescribing issue [Recovered/Resolved]

NARRATIVE: CASE EVENT DATE: 20230501
